FAERS Safety Report 17026174 (Version 1)
Quarter: 2019Q4

REPORT INFORMATION
  Report Type: Report from Study
  Country: US (occurrence: US)
  Receive Date: 20191113
  Receipt Date: 20191113
  Transmission Date: 20200122
  Serious: No
  Sender: FDA-Public Use
  Company Number: NVSC2019US034475

PATIENT
  Age: 52 Year
  Sex: Female

DRUGS (1)
  1. COSENTYX [Suspect]
     Active Substance: SECUKINUMAB
     Indication: DERMATITIS ATOPIC
     Dosage: 300 MG, Q4W
     Route: 058

REACTIONS (2)
  - Diarrhoea [Unknown]
  - Product use in unapproved indication [Unknown]
